FAERS Safety Report 10513376 (Version 1)
Quarter: 2014Q4

REPORT INFORMATION
  Report Type: Spontaneous
  Country: JP (occurrence: JP)
  Receive Date: 20141013
  Receipt Date: 20141013
  Transmission Date: 20150528
  Serious: Yes (Other)
  Sender: FDA-Public Use
  Company Number: JP-TEVA-513346ISR

PATIENT

DRUGS (1)
  1. (TS)LANSOPRAZOLE OD TABLET ^TEVA^, TAB [Suspect]
     Active Substance: LANSOPRAZOLE

REACTIONS (1)
  - Haemolytic uraemic syndrome [Unknown]
